FAERS Safety Report 4293747-1 (Version None)
Quarter: 2004Q1

REPORT INFORMATION
  Report Type: 
  Country: None (occurrence: None)
  Receive Date: 20040212
  Receipt Date: 20040202
  Transmission Date: 20041129
  Serious: Yes (Other)
  Sender: FDA-Public Use
  Company Number: GB-GLAXOSMITHKLINE-B0321971A

PATIENT
  Age: 35 Year
  Sex: Male
  Weight: 60 kg

DRUGS (5)
  1. ZYBAN [Suspect]
     Indication: EX-SMOKER
     Dosage: 150MG TWICE PER DAY
     Route: 048
     Dates: start: 20001101
  2. ETHANOL [Suspect]
     Route: 065
  3. BECLOMETHASONE DIPROPIONATE [Concomitant]
     Route: 065
     Dates: start: 19960502
  4. SALBUTAMOL [Concomitant]
     Route: 065
     Dates: start: 19960615
  5. ERYTHROMYCIN [Concomitant]
     Dosage: 5ML FOUR TIMES PER DAY
     Route: 065
     Dates: end: 20001107

REACTIONS (3)
  - AGGRESSION [None]
  - ALCOHOL USE [None]
  - INTENTIONAL SELF-INJURY [None]
